FAERS Safety Report 4422447-X (Version None)
Quarter: 2004Q3

REPORT INFORMATION
  Report Type: 
  Country: None (occurrence: None)
  Receive Date: 20040804
  Receipt Date: 20040716
  Transmission Date: 20050211
  Serious: Yes (Other)
  Sender: FDA-Public Use
  Company Number: B0339504A

PATIENT
  Age: 51 Year
  Sex: Male

DRUGS (7)
  1. EPIVIR [Suspect]
     Dates: start: 20000601, end: 20010601
  2. RETROVIR [Suspect]
     Dates: start: 20000601, end: 20010601
  3. INDINAVIR SULFATE (FORMULATION UNKNOWN) (INDINAVIR SULFATE) [Suspect]
     Dates: start: 20000601, end: 20010601
  4. RITONAVIR [Concomitant]
  5. DIDANOSINE [Concomitant]
  6. STAVUDINE [Concomitant]
  7. NELFINAVIR MESYLATE [Concomitant]

REACTIONS (1)
  - NEUTROPENIA [None]
